FAERS Safety Report 10010826 (Version 2)
Quarter: 2014Q1

REPORT INFORMATION
  Report Type: Spontaneous
  Country: DE (occurrence: None)
  Receive Date: 20140311
  Receipt Date: 20140321
  Transmission Date: 20141002
  Serious: Yes (Congenital Anomaly, Other)
  Sender: FDA-Public Use
  Company Number: AUR-APL-2014-02578

PATIENT
  Sex: Female
  Weight: 3.84 kg

DRUGS (5)
  1. RAMIPRIL [Suspect]
     Indication: HYPERTENSION
     Dosage: ?
     Route: 064
     Dates: start: 20121010, end: 20121015
  2. EDARBI [Suspect]
     Indication: HYPERTENSION
     Route: 064
     Dates: start: 20120607, end: 20121119
  3. METHYLDOPA (METHYLDOPA) [Concomitant]
  4. INFLUSPLIT SSW (INFLUENZA VACCINE) [Concomitant]
  5. FOLIO FORTE (FOLIC ACID W/POTASSIUM IODIDE/VITAMIN B12 NOS) [Concomitant]

REACTIONS (4)
  - Foetal heart rate deceleration abnormality [None]
  - Maternal drugs affecting foetus [None]
  - Oligohydramnios [None]
  - Foetal death [None]
